FAERS Safety Report 16264574 (Version 1)
Quarter: 2019Q2

REPORT INFORMATION
  Report Type: Report from Study
  Country: US (occurrence: US)
  Receive Date: 20190502
  Receipt Date: 20190502
  Transmission Date: 20190711
  Serious: Yes (Hospitalization, Other)
  Sender: FDA-Public Use
  Company Number: US-MYLANLABS-2019M1042304

PATIENT
  Age: 74 Year
  Sex: Female

DRUGS (4)
  1. FLUOROURACIL. [Suspect]
     Active Substance: FLUOROURACIL
     Indication: COLON CANCER METASTATIC
     Dosage: FIRST AND LAST CYCLE (RECEIVED 2 CYCLES)
     Route: 065
  2. FOLINIC ACID [Suspect]
     Active Substance: LEUCOVORIN
     Indication: COLON CANCER METASTATIC
     Dosage: RECEIVED 2 CYCLES
     Route: 065
  3. ZALTRAP [Suspect]
     Active Substance: ZIV-AFLIBERCEPT
     Indication: COLON CANCER METASTATIC
     Dosage: FIRST AND LAST CYCLE (RECEIVED 2 CYCLES)
     Route: 065
  4. IRINOTECAN [Suspect]
     Active Substance: IRINOTECAN
     Indication: COLON CANCER METASTATIC
     Dosage: FIRST AND LAST CYCLE (RECEIVED 2 CYCLES)
     Route: 065

REACTIONS (6)
  - Febrile neutropenia [Unknown]
  - Urinary tract infection [Unknown]
  - Asthenia [Unknown]
  - Fall [Unknown]
  - Electrolyte imbalance [Unknown]
  - Spinal fracture [Unknown]
